FAERS Safety Report 5760217-0 (Version None)
Quarter: 2008Q2

REPORT INFORMATION
  Report Type: 
  Country: None (occurrence: None)
  Receive Date: 20080602
  Receipt Date: 20080516
  Transmission Date: 20081010
  Serious: Yes (Hospitalization)
  Sender: FDA-Public Use
  Company Number: DSA_31896_2008

PATIENT
  Sex: Female

DRUGS (3)
  1. TAVOR [Suspect]
     Dosage: ORAL
     Route: 048
     Dates: start: 20080507, end: 20080507
  2. APONAL (APONAL - DOXEPIN) [Suspect]
     Dosage: ORAL
     Route: 048
     Dates: start: 20080507, end: 20080507
  3. CITALOPRAM HYDROBROMIDE [Suspect]
     Dosage: ORAL
     Route: 048
     Dates: start: 20080507, end: 20080507

REACTIONS (5)
  - HYPOTHERMIA [None]
  - MULTIPLE DRUG OVERDOSE INTENTIONAL [None]
  - RESPIRATORY ACIDOSIS [None]
  - SOPOR [None]
  - SUICIDE ATTEMPT [None]
